FAERS Safety Report 9485688 (Version 4)
Quarter: 2014Q1

REPORT INFORMATION
  Report Type: Spontaneous
  Country: JP (occurrence: None)
  Receive Date: 20130822
  Receipt Date: 20140228
  Transmission Date: 20141002
  Serious: Yes (Hospitalization)
  Sender: FDA-Public Use
  Company Number: 2013JP002320

PATIENT
  Age: 67 Year
  Sex: Male
  Weight: 63 kg

DRUGS (13)
  1. PONATINIB [Suspect]
     Indication: CHRONIC MYELOID LEUKAEMIA
     Route: 048
     Dates: start: 20130213, end: 20130815
  2. DIOVAN (VALSARTAN) [Concomitant]
  3. WYTENS (GUANABENZ ACETATE) [Concomitant]
  4. AMLODIPINE (AMLODIPINE BESILATE) [Concomitant]
  5. FLUITRAN (TRICHLORMETHIAZIDE) [Concomitant]
  6. NIFEDIPINE (NIFEDIPINE) (NIFEDIPINE) [Concomitant]
  7. ALOSITOL (ALLOPURINOL) [Concomitant]
  8. NOVOLIN N (INSULIN HUMAN INJECTION, ISOPHANE) [Concomitant]
  9. MOHRUS (KETOPROFEN) [Concomitant]
  10. ALOSENN (ACHILLEA MILLEFOLIUM,  RUBIA TINCTORUM ROOT TINCTURE, SENNA ALEXANDRINA FRUIT, SENNA ALEXANDRINA LEAF, TARAXACUM OFFICINALE) [Concomitant]
  11. CRAVIT (LEVOFLOXACIN) [Concomitant]
  12. HYALEIN (HYALURONATE SODIUM) [Concomitant]
  13. THYRADIN-S (LEVOTHYROXINE SODIUM) [Concomitant]

REACTIONS (5)
  - Cerebral infarction [None]
  - Brain stem infarction [None]
  - Basilar artery stenosis [None]
  - Cerebral artery stenosis [None]
  - Cerebral artery stenosis [None]
